FAERS Safety Report 8791681 (Version 2)
Quarter: 2012Q4

REPORT INFORMATION
  Report Type: 
  Country: CN (occurrence: CN)
  Receive Date: 20120918
  Receipt Date: 20120924
  Transmission Date: 20130627
  Serious: Yes (Death)
  Sender: FDA-Public Use
  Company Number: CN-PFIZER INC-2012224944

PATIENT
  Age: 40 Year
  Sex: Male

DRUGS (1)
  1. SUTENT [Suspect]
     Indication: GASTROINTESTINAL STROMAL TUMOUR
     Dosage: UNK

REACTIONS (5)
  - Disease progression [Fatal]
  - Gastrointestinal stromal tumour [Fatal]
  - Multi-organ failure [Fatal]
  - Ascites [Fatal]
  - Haemorrhage [Fatal]
